FAERS Safety Report 13574460 (Version 1)
Quarter: 2017Q2

REPORT INFORMATION
  Report Type: Report from Study
  Country: AT (occurrence: AT)
  Receive Date: 20170523
  Receipt Date: 20170523
  Transmission Date: 20170830
  Serious: Yes (Other)
  Sender: FDA-Public Use
  Company Number: AT-TEVA-770971ROM

PATIENT
  Age: 2 Year

DRUGS (1)
  1. LAMOTRIGINE. [Suspect]
     Active Substance: LAMOTRIGINE
     Dosage: 6.5 MG/KG
     Route: 048

REACTIONS (6)
  - Overdose [Unknown]
  - Seizure [Unknown]
  - Vomiting [Unknown]
  - Ataxia [Unknown]
  - Muscle contractions involuntary [Unknown]
  - Agitation [Unknown]
